FAERS Safety Report 7044993-5 (Version None)
Quarter: 2010Q4

REPORT INFORMATION
  Report Type: 
  Country: None (occurrence: None)
  Receive Date: 20101014
  Receipt Date: 20101004
  Transmission Date: 20110411
  Serious: Yes (Hospitalization)
  Sender: FDA-Public Use
  Company Number: IL-NOVOPROD-316199

PATIENT
  Age: 59 Year
  Sex: Male
  Weight: 120 kg

DRUGS (2)
  1. VICTOZA [Suspect]
     Indication: TYPE 2 DIABETES MELLITUS
     Dosage: 1.2 MG, QD
     Dates: start: 20100601
  2. VICTOZA [Suspect]
     Dosage: 0.6 MG, QD
     Dates: end: 20100801

REACTIONS (3)
  - ABDOMINAL PAIN [None]
  - NAUSEA [None]
  - RENAL FAILURE [None]
